FAERS Safety Report 12178662 (Version 2)
Quarter: 2016Q1

REPORT INFORMATION
  Report Type: Spontaneous
  Country: BR (occurrence: BR)
  Receive Date: 20160315
  Receipt Date: 20160329
  Transmission Date: 20160526
  Serious: Yes (Hospitalization)
  Sender: FDA-Public Use
  Company Number: BR-LEO PHARMA-240688

PATIENT
  Age: 57 Year
  Sex: Female

DRUGS (1)
  1. PICATO [Suspect]
     Active Substance: INGENOL MEBUTATE
     Indication: ACTINIC KERATOSIS
     Route: 061
     Dates: start: 20160220, end: 20160221

REACTIONS (4)
  - Intestinal obstruction [Not Recovered/Not Resolved]
  - Application site irritation [Not Recovered/Not Resolved]
  - Sepsis [Not Recovered/Not Resolved]
  - Abdominal pain [Not Recovered/Not Resolved]

NARRATIVE: CASE EVENT DATE: 20160223
